FAERS Safety Report 5847197-4 (Version None)
Quarter: 2008Q3

REPORT INFORMATION
  Report Type: 
  Country: None (occurrence: None)
  Receive Date: 20080815
  Receipt Date: 20080813
  Transmission Date: 20090109
  Serious: Yes (Other)
  Sender: FDA-Public Use
  Company Number: PHEH2008US06401

PATIENT
  Sex: Female

DRUGS (2)
  1. DIOVAN HCT [Suspect]
     Dosage: 160 MG VAL, 12.5 MG HCT, UNK
     Dates: start: 20080501
  2. AMLODIPINE [Suspect]
     Dosage: UNK
     Dates: start: 20080501

REACTIONS (5)
  - BLOOD PRESSURE INCREASED [None]
  - DIZZINESS [None]
  - FEELING HOT [None]
  - GLAUCOMA [None]
  - NAUSEA [None]
